FAERS Safety Report 14454140 (Version 1)
Quarter: 2018Q1

REPORT INFORMATION
  Report Type: Spontaneous
  Country: JP (occurrence: JP)
  Receive Date: 20180129
  Receipt Date: 20180129
  Transmission Date: 20180509
  Serious: Yes (Hospitalization)
  Sender: FDA-Public Use
  Company Number: JP-PFIZER INC-2018032962

PATIENT
  Age: 67 Year
  Sex: Male
  Weight: 66.6 kg

DRUGS (13)
  1. BOREI POWDER M [Concomitant]
     Dosage: UNK
  2. SHOKYO POWDER M [Concomitant]
     Dosage: UNK
  3. CIMETIDINE [Concomitant]
     Active Substance: CIMETIDINE
     Dosage: UNK
  4. SOJUTSU POWDER M [Concomitant]
     Dosage: UNK
  5. KOBOKU POWDER M [Concomitant]
     Dosage: UNK
  6. METHOTREXATE SODIUM. [Suspect]
     Active Substance: METHOTREXATE SODIUM
     Indication: RHEUMATOID ARTHRITIS
     Dosage: UNK
     Route: 048
     Dates: end: 20161012
  7. PROGRAF [Suspect]
     Active Substance: TACROLIMUS\TACROLIMUS ANHYDROUS
     Indication: RHEUMATOID ARTHRITIS
     Dosage: UNK
     Route: 048
  8. SUCRALFATE. [Concomitant]
     Active Substance: SUCRALFATE
     Dosage: UNK
  9. KOJIMA CHINPI M [Concomitant]
     Dosage: UNK
  10. SODIUM BICARBONATE. [Concomitant]
     Active Substance: SODIUM BICARBONATE
     Dosage: UNK
  11. SULPIRIDE [Concomitant]
     Active Substance: SULPIRIDE
     Dosage: UNK
  12. KOJIN POWDER M [Concomitant]
     Dosage: UNK
  13. BIOFERMIN [Concomitant]
     Active Substance: BACILLUS SUBTILIS\LACTOBACILLUS ACIDOPHILUS\STREPTOCOCCUS FAECAIS
     Dosage: UNK

REACTIONS (2)
  - Febrile neutropenia [Unknown]
  - Diffuse large B-cell lymphoma [Recovered/Resolved]

NARRATIVE: CASE EVENT DATE: 201609
